FAERS Safety Report 6795713-0 (Version None)
Quarter: 2010Q2

REPORT INFORMATION
  Report Type: 
  Country: None (occurrence: None)
  Receive Date: 20100622
  Receipt Date: 20100607
  Transmission Date: 20101027
  Serious: Yes (Other)
  Sender: FDA-Public Use
  Company Number: 2010AL003395

PATIENT
  Age: 17 Year
  Sex: Male

DRUGS (9)
  1. CHLORHEXIDINE GLUCONATE [Suspect]
     Indication: SURGERY
     Dates: start: 20100513, end: 20100513
  2. FENTANYL [Suspect]
     Indication: SURGERY
     Dosage: 22.5 MCG;
     Dates: start: 20100513, end: 20100513
  3. FEVERALL [Suspect]
     Indication: SURGERY
     Dosage: 1 G;
     Dates: start: 20100513, end: 20100513
  4. CEFALOTIN [Concomitant]
  5. VENOFUNDIN [Concomitant]
  6. METRONIDAZOLE [Concomitant]
  7. SEVORANE [Concomitant]
  8. PENTOTHAL [Concomitant]
  9. CURACIT [Concomitant]

REACTIONS (5)
  - BLOOD IMMUNOGLOBULIN E INCREASED [None]
  - ERYTHEMA [None]
  - LABILE BLOOD PRESSURE [None]
  - TACHYCARDIA [None]
  - TRYPTASE INCREASED [None]
